FAERS Safety Report 10971195 (Version 1)
Quarter: 2015Q1

REPORT INFORMATION
  Report Type: Spontaneous
  Country: GB (occurrence: None)
  Receive Date: 20150326
  Receipt Date: 20150326
  Transmission Date: 20150721
  Serious: Yes (Other)
  Sender: FDA-Public Use
  Company Number: 201503126

PATIENT
  Age: 71 Year
  Sex: Male

DRUGS (1)
  1. XIAPEX (CLOSTRIDIAL COLLAGENASE) [Suspect]
     Active Substance: COLLAGENASE CLOSTRIDIUM HISTOLYTICUM
     Indication: DUPUYTREN^S CONTRACTURE
     Route: 035

REACTIONS (4)
  - Injection site vesicles [None]
  - Blood blister [None]
  - Scar [None]
  - Syndactyly [None]
